FAERS Safety Report 7914282-2 (Version None)
Quarter: 2011Q4

REPORT INFORMATION
  Report Type: 
  Country: None (occurrence: None)
  Receive Date: 20111115
  Receipt Date: 20111107
  Transmission Date: 20120403
  Serious: Yes (Hospitalization)
  Sender: FDA-Public Use
  Company Number: US-US-EMD SERONO, INC.-7007666

PATIENT
  Sex: Female

DRUGS (3)
  1. TYLENOL W/ CODEINE [Concomitant]
     Indication: PAIN
  2. REBIF [Suspect]
     Indication: MULTIPLE SCLEROSIS
     Route: 058
     Dates: start: 20090929
  3. FLEXERIL [Concomitant]
     Indication: MUSCLE RELAXANT THERAPY
     Dates: start: 20060101

REACTIONS (4)
  - ABASIA [None]
  - SYNCOPE [None]
  - HYPOAESTHESIA [None]
  - BLOOD PRESSURE ABNORMAL [None]
